FAERS Safety Report 8978216 (Version 1)
Quarter: 2012Q4

REPORT INFORMATION
  Report Type: 
  Country: CO (occurrence: CO)
  Receive Date: 20121221
  Receipt Date: 20121221
  Transmission Date: 20130627
  Serious: Yes (Other)
  Sender: FDA-Public Use
  Company Number: CO-JNJFOC-20121013694

PATIENT
  Age: 41 Year
  Sex: Female

DRUGS (2)
  1. REMICADE [Suspect]
     Indication: COLITIS ULCERATIVE
     Route: 042
     Dates: start: 20121013, end: 20121208
  2. REMICADE [Suspect]
     Indication: COLITIS ULCERATIVE
     Route: 042
     Dates: start: 20120512

REACTIONS (5)
  - Respiratory distress [Recovered/Resolved]
  - Infusion related reaction [Unknown]
  - Tachycardia [Unknown]
  - Erythema [Unknown]
  - Chest discomfort [Recovered/Resolved]
